FAERS Safety Report 11362755 (Version 1)
Quarter: 2015Q3

REPORT INFORMATION
  Report Type: Other
  Country: FR (occurrence: FR)
  Receive Date: 20150810
  Receipt Date: 20150810
  Transmission Date: 20151125
  Serious: Yes (Hospitalization, Other)
  Sender: FDA-Public Use
  Company Number: FR-SEBELA IRELAND LIMITED-2015SEB00063

PATIENT
  Age: 29 Year
  Sex: Male
  Weight: 87 kg

DRUGS (3)
  1. MIACALCIC [Suspect]
     Active Substance: CALCITONIN SALMON
     Indication: COMPLEX REGIONAL PAIN SYNDROME
     Dosage: 50 IU, ONCE
     Route: 058
     Dates: start: 20150608, end: 20150608
  2. VOGALENE [Concomitant]
     Active Substance: METOPIMAZINE
     Dosage: UNK
     Dates: start: 20150608
  3. AERIUS [Concomitant]
     Active Substance: DESLORATADINE

REACTIONS (6)
  - Nausea [None]
  - Off label use [Recovered/Resolved]
  - Asthenia [None]
  - Generalised tonic-clonic seizure [Recovered/Resolved]
  - Paraesthesia [None]
  - Photophobia [None]

NARRATIVE: CASE EVENT DATE: 20150608
